FAERS Safety Report 5584760-2 (Version None)
Quarter: 2008Q1

REPORT INFORMATION
  Report Type: 
  Country: None (occurrence: None)
  Receive Date: 20080103
  Receipt Date: 20071220
  Transmission Date: 20080703
  Serious: Yes (Other)
  Sender: FDA-Public Use
  Company Number: 100#03#2007-05379

PATIENT
  Age: 30 Year
  Sex: Female

DRUGS (6)
  1. TRAMADOL HCL [Suspect]
     Indication: DRUG USE FOR UNKNOWN INDICATION
  2. VERSATIS (LIDOCAINE) (LIDOCAINE) [Suspect]
     Indication: BACK PAIN
     Dosage: 1 DOSAGE FORM EVERY 12 HOURS TOPICAL
     Route: 061
     Dates: start: 20071105, end: 20071110
  3. DICLOFENAC (DICLOFENAC) (DICLOFENAC) [Concomitant]
  4. IBUPROFEN [Concomitant]
  5. KAPAKE INSTS (PANADEINE CO) (CODEINE, PARACETAMOL) [Concomitant]
  6. PARACETAMOL (PARACETAMOL) (PARACETAMOL) [Concomitant]

REACTIONS (4)
  - DRUG INTERACTION [None]
  - ERYTHEMA [None]
  - HYPERHIDROSIS [None]
  - MALAISE [None]
